FAERS Safety Report 9633829 (Version 2)
Quarter: 2013Q4

REPORT INFORMATION
  Report Type: Spontaneous
  Country: FI (occurrence: FI)
  Receive Date: 20131021
  Receipt Date: 20131104
  Transmission Date: 20140711
  Serious: No
  Sender: FDA-Public Use
  Company Number: FI-009507513-1310FIN008243

PATIENT
  Age: 75 Year
  Sex: Male

DRUGS (14)
  1. JANUMET [Suspect]
     Indication: DIABETES MELLITUS
     Dosage: 50/100 MG, IN THE MORNING (1X1)
     Route: 048
     Dates: start: 20130529
  2. JANUMET [Suspect]
     Dosage: 50/100 MG, BID (1X2). DAILY DOSAGE 100/2000 MG
     Route: 048
     Dates: start: 20120625, end: 20130528
  3. METFORMIN [Concomitant]
     Dosage: UNK
     Dates: start: 200304, end: 201304
  4. PRIMASPAN [Concomitant]
     Dosage: 100 MG, QD (1X1)
  5. ISANGINA [Concomitant]
     Indication: ISCHAEMIA
     Dosage: 25 MG, QD (1X1)
     Dates: start: 20061115
  6. AMITRID MITE [Concomitant]
     Dosage: FREQUENCY: 1X1
  7. SELOKEN ZOC [Concomitant]
     Dosage: 95 MG, QD (1X1)
     Dates: start: 20061115
  8. ROSUVASTATIN CALCIUM [Concomitant]
     Dosage: 10 MG, QD (1X1)
     Dates: start: 20110506
  9. OMNIC [Concomitant]
     Dosage: 0.4 MG, QD (1X1)
     Dates: start: 20120301
  10. PROSCAR [Concomitant]
     Dosage: 5 MG, QD (1X1)
     Route: 048
     Dates: start: 20120301
  11. SYMBICORT [Concomitant]
     Dosage: FREQUENCY: 1X2-4
  12. BRICANYL [Concomitant]
     Dosage: UNK
  13. NITRO [Concomitant]
     Dosage: UNK
  14. PANADOL FORTE [Concomitant]
     Dosage: UNK, PRN

REACTIONS (3)
  - Asthenia [Recovered/Resolved]
  - Nausea [Recovered/Resolved]
  - Inappropriate schedule of drug administration [Unknown]
